FAERS Safety Report 6577791-7 (Version None)
Quarter: 2010Q1

REPORT INFORMATION
  Report Type: 
  Country: None (occurrence: None)
  Receive Date: 20100211
  Receipt Date: 20100207
  Transmission Date: 20100710
  Serious: Yes (Other)
  Sender: FDA-Public Use
  Company Number: US-BAYER-201013425NA

PATIENT
  Age: 39 Year
  Sex: Female
  Weight: 101 kg

DRUGS (2)
  1. ULTRAVIST (PHARMACY BULK) [Suspect]
     Indication: COMPUTERISED TOMOGRAM ABDOMEN
     Dosage: AS USED: 125  ML  UNIT DOSE: 500 ML
     Route: 042
     Dates: start: 20100205, end: 20100205
  2. GASTROVIST [Concomitant]
     Indication: COMPUTERISED TOMOGRAM ABDOMEN
     Dosage: 16 OUNCES 90 MINUTES PRIOR TO SCAN
     Route: 048
     Dates: start: 20100205, end: 20100205

REACTIONS (4)
  - GENERALISED ERYTHEMA [None]
  - OEDEMA PERIPHERAL [None]
  - SWELLING FACE [None]
  - URTICARIA [None]
